FAERS Safety Report 17566708 (Version 1)
Quarter: 2020Q1

REPORT INFORMATION
  Report Type: Report from Study
  Country: US (occurrence: US)
  Receive Date: 20200320
  Receipt Date: 20200320
  Transmission Date: 20200409
  Serious: Yes (Hospitalization, Other)
  Sender: FDA-Public Use
  Company Number: US-BAYER-2020-032836

PATIENT
  Age: 61 Year
  Sex: Male

DRUGS (1)
  1. NEXAVAR [Suspect]
     Active Substance: SORAFENIB
     Indication: HEPATIC CANCER
     Dosage: 200 MG, ONCE IN THE MORNING ON AN EMPTY STOMACH
     Route: 048
     Dates: start: 20200221, end: 2020

REACTIONS (9)
  - Gait inability [Unknown]
  - Dizziness [Unknown]
  - Medication error [None]
  - Peripheral swelling [Unknown]
  - Off label use [None]
  - Abdominal distension [Unknown]
  - Pain [Unknown]
  - Burning sensation [Unknown]
  - Skin exfoliation [Not Recovered/Not Resolved]

NARRATIVE: CASE EVENT DATE: 202002
